FAERS Safety Report 17939768 (Version 1)
Quarter: 2020Q2

REPORT INFORMATION
  Report Type: Spontaneous
  Country: US (occurrence: US)
  Receive Date: 20200625
  Receipt Date: 20200625
  Transmission Date: 20200714
  Serious: No
  Sender: FDA-Public Use
  Company Number: US-JNJFOC-20200627359

PATIENT
  Age: 70 Year
  Sex: Female
  Weight: 65.83 kg

DRUGS (2)
  1. PEPCID AC [Suspect]
     Active Substance: FAMOTIDINE
     Indication: ANTACID THERAPY
     Route: 048
     Dates: start: 20200617
  2. METROZOLE                          /00012501/ [Concomitant]
     Indication: PRODUCT USED FOR UNKNOWN INDICATION
     Route: 065

REACTIONS (4)
  - Chest pain [Not Recovered/Not Resolved]
  - Incorrect dose administered [Unknown]
  - Dyspepsia [Recovered/Resolved]
  - Chest discomfort [Recovered/Resolved]

NARRATIVE: CASE EVENT DATE: 20200617
